FAERS Safety Report 17660395 (Version 4)
Quarter: 2021Q1

REPORT INFORMATION
  Report Type: Spontaneous
  Country: US (occurrence: US)
  Receive Date: 20200413
  Receipt Date: 20210331
  Transmission Date: 20210419
  Serious: No
  Sender: FDA-Public Use
  Company Number: US-PFIZER INC-2020148725

PATIENT
  Age: 44 Year
  Sex: Male

DRUGS (1)
  1. SOMAVERT [Suspect]
     Active Substance: PEGVISOMANT
     Indication: ACROMEGALY
     Dosage: 10 MG, 3 TIMES PER WEEK/EVERY MON, WED, FRI
     Route: 058
     Dates: start: 20200224

REACTIONS (13)
  - Wrong technique in device usage process [Unknown]
  - Pain in extremity [Not Recovered/Not Resolved]
  - Loss of personal independence in daily activities [Unknown]
  - Paraesthesia [Unknown]
  - Intentional device misuse [Unknown]
  - Insulin-like growth factor increased [Recovering/Resolving]
  - Musculoskeletal stiffness [Unknown]
  - Asthenia [Recovering/Resolving]
  - Arthralgia [Not Recovered/Not Resolved]
  - Pain [Unknown]
  - Joint stiffness [Not Recovered/Not Resolved]
  - Hypoaesthesia [Unknown]
  - Diarrhoea [Recovering/Resolving]

NARRATIVE: CASE EVENT DATE: 202005
